FAERS Safety Report 18701338 (Version 3)
Quarter: 2022Q3

REPORT INFORMATION
  Report Type: Spontaneous
  Country: IN (occurrence: IN)
  Receive Date: 20210105
  Receipt Date: 20220915
  Transmission Date: 20221027
  Serious: Yes (Other)
  Sender: FDA-Public Use
  Company Number: IN-PFIZER INC-2020520803

PATIENT
  Age: 61 Year
  Sex: Female

DRUGS (2)
  1. AROMASIN [Suspect]
     Active Substance: EXEMESTANE
     Indication: Breast cancer metastatic
     Dosage: 25 MG ONCE A DAY
     Route: 048
     Dates: start: 20190130
  2. AROMASIN [Suspect]
     Active Substance: EXEMESTANE
     Dosage: 1 MG
     Route: 048

REACTIONS (2)
  - SARS-CoV-2 test positive [Recovered/Resolved]
  - Wrong strength [Unknown]
